FAERS Safety Report 10285349 (Version 3)
Quarter: 2014Q3

REPORT INFORMATION
  Report Type: Spontaneous
  Country: US (occurrence: US)
  Receive Date: 20140708
  Receipt Date: 20140910
  Transmission Date: 20150326
  Serious: Yes (Life-Threatening, Disabling, Other)
  Sender: FDA-Public Use
  Company Number: US-GILEAD-2014-0107989

PATIENT
  Age: 48 Year
  Sex: Male
  Weight: 74.3 kg

DRUGS (5)
  1. BACTRIM DS [Concomitant]
     Active Substance: SULFAMETHOXAZOLE\TRIMETHOPRIM
     Indication: OPPORTUNISTIC INFECTION PROPHYLAXIS
     Dosage: 800/160 UNKNOWN, UNK
     Route: 048
     Dates: start: 20140414
  2. DARUNAVIR [Concomitant]
     Active Substance: DARUNAVIR
     Indication: HIV INFECTION
     Dosage: 800 UNKNOWN, UNK
     Route: 048
     Dates: start: 20140421, end: 20140613
  3. NORVIR [Concomitant]
     Active Substance: RITONAVIR
     Indication: HIV INFECTION
     Dosage: 100 UNKNOWN, UNK
     Route: 048
     Dates: start: 20140421, end: 20140613
  4. TRUVADA [Suspect]
     Active Substance: EMTRICITABINE\TENOFOVIR DISOPROXIL FUMARATE
     Indication: HIV INFECTION
     Dosage: 1 200/300, QD
     Route: 048
     Dates: start: 20140421, end: 20140613
  5. AZITHROMYCIN [Concomitant]
     Active Substance: AZITHROMYCIN ANHYDROUS
     Indication: OPPORTUNISTIC INFECTION PROPHYLAXIS
     Dosage: 1200 UNKNOWN, UNK
     Route: 048
     Dates: start: 20140414, end: 20140613

REACTIONS (13)
  - Hypocalcaemia [Recovering/Resolving]
  - Gait disturbance [Recovering/Resolving]
  - Muscular weakness [Recovering/Resolving]
  - Renal tubular disorder [Unknown]
  - Hypokalaemia [Recovering/Resolving]
  - Dysarthria [Recovering/Resolving]
  - Asthenia [Unknown]
  - Hypomagnesaemia [Recovering/Resolving]
  - Diplopia [Recovering/Resolving]
  - Hypoaesthesia [Recovering/Resolving]
  - Headache [Unknown]
  - CD4 lymphocytes decreased [Unknown]
  - Fall [Recovering/Resolving]

NARRATIVE: CASE EVENT DATE: 201406
